FAERS Safety Report 6905686-5 (Version None)
Quarter: 2010Q3

REPORT INFORMATION
  Report Type: 
  Country: None (occurrence: None)
  Receive Date: 20100804
  Receipt Date: 20100729
  Transmission Date: 20110219
  Serious: Yes (Other)
  Sender: FDA-Public Use
  Company Number: BE-BRISTOL-MYERS SQUIBB COMPANY-15219637

PATIENT

DRUGS (1)
  1. MITOMYCIN [Suspect]
     Indication: TRABECULECTOMY
     Dosage: INJECTION 1 DF=0.2 MG/ML
     Route: 031

REACTIONS (2)
  - CORNEAL DISORDER [None]
  - DRY EYE [None]
